FAERS Safety Report 4726877-8 (Version None)
Quarter: 2005Q3

REPORT INFORMATION
  Report Type: 
  Country: None (occurrence: None)
  Receive Date: 20050727
  Receipt Date: 20050727
  Transmission Date: 20060218
  Serious: Yes (Other)
  Sender: FDA-Public Use
  Company Number: None

PATIENT
  Age: 63 Year
  Sex: Male
  Weight: 81.1 kg

DRUGS (5)
  1. CETUXIMAB [Suspect]
     Indication: COLON CANCER
     Dosage: 500MG,  500MG, INTRAVEN
     Route: 042
  2. GLYBURIDE [Concomitant]
  3. LISINOPRIL [Concomitant]
  4. DOCUSATE NA [Concomitant]
  5. HYDROCODONE 7.5/ACETAMINOPHEN 500MG [Concomitant]

REACTIONS (2)
  - ACNE [None]
  - RASH [None]
